APPROVED DRUG PRODUCT: BLEOMYCIN SULFATE
Active Ingredient: BLEOMYCIN SULFATE
Strength: EQ 30 UNITS BASE/VIAL
Dosage Form/Route: INJECTABLE;INJECTION
Application: A065033 | Product #002
Applicant: TEVA PHARMACEUTICALS USA
Approved: Jun 27, 2000 | RLD: No | RS: No | Type: DISCN